FAERS Safety Report 7424373-0 (Version None)
Quarter: 2011Q2

REPORT INFORMATION
  Report Type: 
  Country: None (occurrence: None)
  Receive Date: 20110419
  Receipt Date: 20110414
  Transmission Date: 20111010
  Serious: Yes (Other)
  Sender: FDA-Public Use
  Company Number: US-GENZYME-MOZO-1000490

PATIENT
  Age: 46 Year
  Sex: Male
  Weight: 104 kg

DRUGS (5)
  1. MOZOBIL [Suspect]
     Indication: HAEMATOPOIETIC STEM CELL MOBILISATION
     Dosage: 24 MG, QD
     Route: 058
     Dates: start: 20110321, end: 20110322
  2. FLUDARA [Suspect]
     Indication: BONE MARROW CONDITIONING REGIMEN
     Dosage: 50 MG, QD
     Route: 042
     Dates: start: 20101004, end: 20110209
  3. RITUXIMAB [Concomitant]
     Indication: CHEMOTHERAPY
     Dosage: UNK
     Dates: start: 20101004, end: 20110209
  4. MOZOBIL [Suspect]
     Indication: NON-HODGKIN'S LYMPHOMA
  5. MITOXANTRONE [Concomitant]
     Indication: CHEMOTHERAPY
     Dosage: UNK
     Dates: start: 20101004, end: 20110209

REACTIONS (1)
  - BLOOD STEM CELL HARVEST FAILURE [None]
